FAERS Safety Report 18225272 (Version 2)
Quarter: 2020Q3

REPORT INFORMATION
  Report Type: Spontaneous
  Country: JP (occurrence: JP)
  Receive Date: 20200903
  Receipt Date: 20200917
  Transmission Date: 20201103
  Serious: Yes (Hospitalization, Other)
  Sender: FDA-Public Use
  Company Number: JP-LUPIN PHARMACEUTICALS INC.-2020-05341

PATIENT
  Age: 8 Decade
  Sex: Male

DRUGS (5)
  1. SUNITINIB [Concomitant]
     Active Substance: SUNITINIB
     Indication: GASTROINTESTINAL STROMAL TUMOUR
     Dosage: 50 MILLIGRAM, QD
     Route: 065
  2. REGORAFENIB. [Concomitant]
     Active Substance: REGORAFENIB
     Dosage: 80 MILLIGRAM, QD
     Route: 065
  3. SUNITINIB [Concomitant]
     Active Substance: SUNITINIB
     Dosage: 25 MILLIGRAM, QD
     Route: 065
  4. IMATINIB MESYLATE. [Suspect]
     Active Substance: IMATINIB MESYLATE
     Indication: GASTROINTESTINAL STROMAL TUMOUR
     Dosage: 400 MILLIGRAM, QD
     Route: 065
  5. REGORAFENIB. [Concomitant]
     Active Substance: REGORAFENIB
     Indication: GASTROINTESTINAL STROMAL TUMOUR
     Dosage: 120 MILLIGRAM, QD
     Route: 065

REACTIONS (1)
  - Interstitial lung disease [Recovering/Resolving]
